FAERS Safety Report 9696900 (Version 1)
Quarter: 2013Q4

REPORT INFORMATION
  Report Type: Spontaneous
  Country: US (occurrence: US)
  Receive Date: 20131119
  Receipt Date: 20131119
  Transmission Date: 20140711
  Serious: Yes (Death, Hospitalization, Other)
  Sender: FDA-Public Use
  Company Number: US-BAXTER-2013BAX045244

PATIENT
  Sex: Female

DRUGS (4)
  1. DIANEAL LOW CALCIUM [Suspect]
     Indication: PERITONEAL DIALYSIS
     Route: 033
     Dates: start: 201112, end: 20131025
  2. DIANEAL LOW CALCIUM [Suspect]
     Indication: RENAL FAILURE CHRONIC
  3. DIANEAL LOW CALCIUM [Suspect]
     Indication: PERITONEAL DIALYSIS
     Route: 033
     Dates: start: 201112, end: 20131025
  4. DIANEAL LOW CALCIUM [Suspect]
     Indication: RENAL FAILURE CHRONIC

REACTIONS (4)
  - Renal failure [Fatal]
  - Hydronephrosis [Fatal]
  - Infection [Recovering/Resolving]
  - Death [Fatal]
